FAERS Safety Report 25807840 (Version 1)
Quarter: 2025Q3

REPORT INFORMATION
  Report Type: Spontaneous
  Country: AU (occurrence: AU)
  Receive Date: 20250916
  Receipt Date: 20250916
  Transmission Date: 20251021
  Serious: Yes (Life-Threatening, Hospitalization)
  Sender: MYLAN
  Company Number: AU-MYLANLABS-2025M1078116

PATIENT
  Age: 24 Year
  Sex: Male

DRUGS (48)
  1. DEXMEDETOMIDINE [Suspect]
     Active Substance: DEXMEDETOMIDINE
     Indication: Sedation
  2. DEXMEDETOMIDINE [Suspect]
     Active Substance: DEXMEDETOMIDINE
     Indication: Agitation
  3. DEXMEDETOMIDINE [Suspect]
     Active Substance: DEXMEDETOMIDINE
     Indication: Delirium
     Route: 065
  4. DEXMEDETOMIDINE [Suspect]
     Active Substance: DEXMEDETOMIDINE
     Route: 065
  5. DEXMEDETOMIDINE [Suspect]
     Active Substance: DEXMEDETOMIDINE
  6. DEXMEDETOMIDINE [Suspect]
     Active Substance: DEXMEDETOMIDINE
  7. DEXMEDETOMIDINE [Suspect]
     Active Substance: DEXMEDETOMIDINE
     Route: 065
  8. DEXMEDETOMIDINE [Suspect]
     Active Substance: DEXMEDETOMIDINE
     Route: 065
  9. DEXMEDETOMIDINE [Suspect]
     Active Substance: DEXMEDETOMIDINE
     Dosage: 1.5 MICROGRAM/KILOGRAM, QH, INFUSION
  10. DEXMEDETOMIDINE [Suspect]
     Active Substance: DEXMEDETOMIDINE
     Dosage: 1.5 MICROGRAM/KILOGRAM, QH, INFUSION
     Route: 065
  11. DEXMEDETOMIDINE [Suspect]
     Active Substance: DEXMEDETOMIDINE
     Dosage: 1.5 MICROGRAM/KILOGRAM, QH, INFUSION
  12. DEXMEDETOMIDINE [Suspect]
     Active Substance: DEXMEDETOMIDINE
     Dosage: 1.5 MICROGRAM/KILOGRAM, QH, INFUSION
     Route: 065
  13. BACLOFEN [Suspect]
     Active Substance: BACLOFEN
     Indication: Alcoholism
  14. BACLOFEN [Suspect]
     Active Substance: BACLOFEN
  15. BACLOFEN [Suspect]
     Active Substance: BACLOFEN
     Route: 048
  16. BACLOFEN [Suspect]
     Active Substance: BACLOFEN
     Route: 048
  17. BACLOFEN [Suspect]
     Active Substance: BACLOFEN
  18. BACLOFEN [Suspect]
     Active Substance: BACLOFEN
  19. BACLOFEN [Suspect]
     Active Substance: BACLOFEN
     Route: 048
  20. BACLOFEN [Suspect]
     Active Substance: BACLOFEN
     Route: 048
  21. ESCITALOPRAM [Suspect]
     Active Substance: ESCITALOPRAM OXALATE
     Indication: Alcoholism
  22. ESCITALOPRAM [Suspect]
     Active Substance: ESCITALOPRAM OXALATE
     Route: 048
  23. ESCITALOPRAM [Suspect]
     Active Substance: ESCITALOPRAM OXALATE
     Route: 048
  24. ESCITALOPRAM [Suspect]
     Active Substance: ESCITALOPRAM OXALATE
  25. MIDAZOLAM [Suspect]
     Active Substance: MIDAZOLAM
     Indication: Agitation
  26. MIDAZOLAM [Suspect]
     Active Substance: MIDAZOLAM
     Indication: Delirium
     Route: 065
  27. MIDAZOLAM [Suspect]
     Active Substance: MIDAZOLAM
     Route: 065
  28. MIDAZOLAM [Suspect]
     Active Substance: MIDAZOLAM
  29. HALOPERIDOL [Suspect]
     Active Substance: HALOPERIDOL
     Indication: Agitation
  30. HALOPERIDOL [Suspect]
     Active Substance: HALOPERIDOL
     Indication: Delirium
     Route: 065
  31. HALOPERIDOL [Suspect]
     Active Substance: HALOPERIDOL
     Route: 065
  32. HALOPERIDOL [Suspect]
     Active Substance: HALOPERIDOL
  33. ATROPINE [Concomitant]
     Active Substance: ATROPINE
     Indication: Bradyarrhythmia
  34. ATROPINE [Concomitant]
     Active Substance: ATROPINE
     Route: 065
  35. ATROPINE [Concomitant]
     Active Substance: ATROPINE
     Route: 065
  36. ATROPINE [Concomitant]
     Active Substance: ATROPINE
  37. EPINEPHRINE [Concomitant]
     Active Substance: EPINEPHRINE
     Indication: Cardiac output decreased
     Dosage: 2 MICROGRAM, QMINUTE, INFUSION
  38. EPINEPHRINE [Concomitant]
     Active Substance: EPINEPHRINE
     Dosage: 2 MICROGRAM, QMINUTE, INFUSION
     Route: 065
  39. EPINEPHRINE [Concomitant]
     Active Substance: EPINEPHRINE
     Dosage: 2 MICROGRAM, QMINUTE, INFUSION
     Route: 065
  40. EPINEPHRINE [Concomitant]
     Active Substance: EPINEPHRINE
     Dosage: 2 MICROGRAM, QMINUTE, INFUSION
  41. PROPOFOL [Concomitant]
     Active Substance: PROPOFOL
     Indication: Sedation
  42. PROPOFOL [Concomitant]
     Active Substance: PROPOFOL
     Route: 065
  43. PROPOFOL [Concomitant]
     Active Substance: PROPOFOL
     Route: 065
  44. PROPOFOL [Concomitant]
     Active Substance: PROPOFOL
  45. FENTANYL [Concomitant]
     Active Substance: FENTANYL
     Indication: Sedation
  46. FENTANYL [Concomitant]
     Active Substance: FENTANYL
     Route: 065
  47. FENTANYL [Concomitant]
     Active Substance: FENTANYL
     Route: 065
  48. FENTANYL [Concomitant]
     Active Substance: FENTANYL

REACTIONS (11)
  - Mental status changes [Recovered/Resolved]
  - Toxicity to various agents [Unknown]
  - Intentional overdose [Unknown]
  - Drug withdrawal syndrome [Unknown]
  - Bradyarrhythmia [Recovered/Resolved]
  - Cardiac output decreased [Unknown]
  - Cardiac arrest [Unknown]
  - Agitation [Unknown]
  - Delirium [Unknown]
  - Therapy non-responder [Unknown]
  - Off label use [Unknown]
